FAERS Safety Report 22656011 (Version 1)
Quarter: 2023Q2

REPORT INFORMATION
  Report Type: Spontaneous
  Country: US (occurrence: US)
  Receive Date: 20230629
  Receipt Date: 20230629
  Transmission Date: 20230722
  Serious: Yes (Other)
  Sender: FDA-Public Use
  Company Number: US-MYLANLABS-2023M1057859

PATIENT
  Sex: Female
  Weight: 46.72 kg

DRUGS (2)
  1. ESTRADIOL TRANSDERMAL SYSTEM [Suspect]
     Active Substance: ESTRADIOL
     Indication: Product used for unknown indication
     Dosage: UNK
     Route: 062
  2. PROGESTERONE [Concomitant]
     Active Substance: PROGESTERONE
     Dosage: UNK
     Route: 065

REACTIONS (6)
  - Mental impairment [Unknown]
  - Brain fog [Unknown]
  - Irritability [Unknown]
  - Adverse drug reaction [Unknown]
  - Product adhesion issue [Unknown]
  - Application site rash [Unknown]
